FAERS Safety Report 15698486 (Version 1)
Quarter: 2018Q4

REPORT INFORMATION
  Report Type: Spontaneous
  Country: US (occurrence: US)
  Receive Date: 20181129
  Receipt Date: 20181129
  Transmission Date: 20190205
  Serious: No
  Sender: FDA-Public Use
  Company Number: None

PATIENT

DRUGS (2)
  1. MORPHINE [Suspect]
     Active Substance: MORPHINE
  2. METHADONE [Suspect]
     Active Substance: METHADONE HYDROCHLORIDE

REACTIONS (1)
  - Product label on wrong product [None]
